FAERS Safety Report 13783387 (Version 1)
Quarter: 2017Q3

REPORT INFORMATION
  Report Type: Spontaneous
  Country: BR (occurrence: BR)
  Receive Date: 20170724
  Receipt Date: 20170724
  Transmission Date: 20171127
  Serious: Yes (Other)
  Sender: FDA-Public Use
  Company Number: BR-PFIZER INC-2017317450

PATIENT
  Sex: Female

DRUGS (2)
  1. EFFEXOR XR [Suspect]
     Active Substance: VENLAFAXINE HYDROCHLORIDE
     Dosage: 1 CAPSULE AT NIGHT
     Route: 048
     Dates: start: 20170706, end: 20170706
  2. TAMOXIFEN [Concomitant]
     Active Substance: TAMOXIFEN
     Dosage: UNK

REACTIONS (10)
  - Retching [Unknown]
  - Palpitations [Unknown]
  - Swollen tongue [Unknown]
  - Dyspnoea [Unknown]
  - Pharyngeal oedema [Unknown]
  - Eructation [Unknown]
  - Insomnia [Unknown]
  - Abdominal discomfort [Unknown]
  - Dysphagia [Unknown]
  - Feeling abnormal [Unknown]

NARRATIVE: CASE EVENT DATE: 20170707
